FAERS Safety Report 19509556 (Version 3)
Quarter: 2022Q1

REPORT INFORMATION
  Report Type: Report from Study
  Country: TH (occurrence: TH)
  Receive Date: 20210708
  Receipt Date: 20220127
  Transmission Date: 20220423
  Serious: Yes (Hospitalization, Other)
  Sender: FDA-Public Use
  Company Number: NVSC2021TH141304

PATIENT
  Age: 80 Year
  Sex: Female

DRUGS (3)
  1. KISQALI [Suspect]
     Active Substance: RIBOCICLIB
     Indication: Breast cancer metastatic
     Dosage: 2 DF, QD (STOP KISQALI 2 WEEKS, 12-26 NOV 2020)
     Route: 048
     Dates: start: 20201022, end: 20201111
  2. KISQALI [Suspect]
     Active Substance: RIBOCICLIB
     Dosage: 1 DF, QD (NG FEEDING)
     Route: 065
  3. KISQALI [Suspect]
     Active Substance: RIBOCICLIB
     Dosage: 2 DOSAGE FORM, QD
     Route: 048

REACTIONS (5)
  - Cerebrovascular accident [Unknown]
  - Breast cancer metastatic [Unknown]
  - Malignant neoplasm progression [Unknown]
  - Neutrophil count decreased [Unknown]
  - Underdose [Unknown]

NARRATIVE: CASE EVENT DATE: 20210623
